FAERS Safety Report 4403757-9 (Version None)
Quarter: 2004Q3

REPORT INFORMATION
  Report Type: 
  Country: None (occurrence: None)
  Receive Date: 20040719
  Receipt Date: 20040709
  Transmission Date: 20050211
  Serious: Yes (Hospitalization)
  Sender: FDA-Public Use
  Company Number: USA-2002-005161

PATIENT
  Sex: Male

DRUGS (4)
  1. CAMPATH [Suspect]
     Indication: STEM CELL TRANSPLANT
  2. FLUDARA FOR INJECTION (FLUDARABINE PHOSPHATE) AMPULES [Suspect]
     Indication: STEM CELL TRANSPLANT
  3. STEM CELL TRANSPLANT [Concomitant]
  4. TOTAL BODY IRRADIATION [Concomitant]

REACTIONS (6)
  - CEREBRAL ISCHAEMIA [None]
  - CSF TEST ABNORMAL [None]
  - HYPOTENSION [None]
  - MENTAL STATUS CHANGES [None]
  - PYREXIA [None]
  - SUPRAVENTRICULAR TACHYCARDIA [None]
